FAERS Safety Report 9183956 (Version 1)
Quarter: 2013Q1

REPORT INFORMATION
  Report Type: Spontaneous
  Country: US (occurrence: US)
  Receive Date: 20130322
  Receipt Date: 20130322
  Transmission Date: 20140127
  Serious: No
  Sender: FDA-Public Use
  Company Number: US-BRISTOL-MYERS SQUIBB COMPANY-16674467

PATIENT
  Age: 70 Year
  Sex: Male
  Weight: 90.7 kg

DRUGS (5)
  1. ERBITUX [Suspect]
     Indication: METASTATIC SQUAMOUS CELL CARCINOMA
     Dates: start: 201203
  2. 5-FLUOROURACIL [Concomitant]
  3. ALOXI [Concomitant]
  4. CISPLATIN [Concomitant]
  5. DEXAMETHASONE [Concomitant]

REACTIONS (4)
  - Sinus disorder [Unknown]
  - Skin discolouration [Recovered/Resolved]
  - Neuralgia [Recovered/Resolved]
  - Rash [Not Recovered/Not Resolved]
